FAERS Safety Report 9490557 (Version 3)
Quarter: 2013Q4

REPORT INFORMATION
  Report Type: Spontaneous
  Country: US (occurrence: US)
  Receive Date: 20130830
  Receipt Date: 20131018
  Transmission Date: 20140711
  Serious: Yes (Hospitalization)
  Sender: FDA-Public Use
  Company Number: US-009507513-1308USA001651

PATIENT
  Age: 61 Year
  Sex: Male
  Weight: 61.68 kg

DRUGS (15)
  1. VICTRELIS [Suspect]
     Dosage: 800 MG, TID (EVERY 7-9 HOURS). START ON WEEK 5
     Route: 048
     Dates: end: 20130827
  2. REBETOL [Suspect]
     Indication: HEPATITIS C
     Dosage: UNK
     Route: 048
     Dates: end: 20130827
  3. PEGASYS [Suspect]
     Indication: HEPATITIS C
     Dosage: 180 MCG/M
     Dates: end: 20130827
  4. PLAQUENIL [Concomitant]
     Dosage: UNK
     Route: 048
  5. PREDNISONE [Concomitant]
     Dosage: PAK 10MG
  6. DILTIAZEM HYDROCHLORIDE [Concomitant]
     Dosage: ^180MG CD^
  7. ASPIR-81 [Concomitant]
     Dosage: ^81 MG EC^
     Route: 048
  8. LANSOPRAZOLE [Concomitant]
     Dosage: 15MG DR
     Route: 048
  9. HYZAAR [Concomitant]
     Dosage: 50-12.5
     Route: 048
  10. OMEGA-3 MARINE TRIGLYCERIDES [Concomitant]
  11. NITROGLYCERIN [Concomitant]
     Dosage: ^SUB 0.3MG^
  12. NADOLOL [Concomitant]
     Dosage: UNK
     Route: 048
  13. MORPHINE [Concomitant]
     Dosage: ^SUL SUP 30MG^
     Route: 054
  14. OXYCODONE [Concomitant]
     Dosage: UNK
     Route: 048
  15. SULFASALAZINE [Concomitant]
     Dosage: ^500 MG DR^
     Route: 048

REACTIONS (8)
  - Dehydration [Unknown]
  - Platelet count decreased [Unknown]
  - Visual impairment [Unknown]
  - Ageusia [Unknown]
  - Aphagia [Unknown]
  - Weight decreased [Unknown]
  - Dizziness [Unknown]
  - Tremor [Unknown]
